FAERS Safety Report 4542541-2 (Version None)
Quarter: 2004Q4

REPORT INFORMATION
  Report Type: 
  Country: None (occurrence: None)
  Receive Date: 20041230
  Receipt Date: 20041222
  Transmission Date: 20050328
  Serious: Yes (Hospitalization, Other)
  Sender: FDA-Public Use
  Company Number: JP-MERCK-0412USA02974

PATIENT
  Age: 56 Year
  Sex: Male

DRUGS (5)
  1. PEPCID [Suspect]
     Route: 065
  2. WARFARIN [Suspect]
     Route: 065
  3. DIPYRIDAMOLE [Suspect]
     Route: 065
  4. CANDESARTAN [Suspect]
     Route: 065
  5. DISOPYRAMIDE [Suspect]
     Route: 065

REACTIONS (6)
  - ENCEPHALOPATHY [None]
  - HAEMODIALYSIS [None]
  - HEPATIC ATROPHY [None]
  - HEPATIC FAILURE [None]
  - HEPATIC FUNCTION ABNORMAL [None]
  - LIVER TRANSPLANT [None]
